FAERS Safety Report 10170957 (Version 1)
Quarter: 2014Q2

REPORT INFORMATION
  Report Type: Spontaneous
  Country: US (occurrence: None)
  Receive Date: 20140512
  Receipt Date: 20140512
  Transmission Date: 20141212
  Serious: Yes (Other)
  Sender: FDA-Public Use
  Company Number: DEP_02084_2014

PATIENT
  Age: 69 Year
  Sex: Male
  Weight: 72.58 kg

DRUGS (6)
  1. LAZANDA [Suspect]
     Indication: FACIAL PAIN
     Dosage: EVERY THREE OR FOUR HOURS
     Route: 045
     Dates: start: 20140305, end: 2014
  2. LAZANDA [Suspect]
     Indication: NECK PAIN
     Dosage: EVERY THREE OR FOUR HOURS
     Route: 045
     Dates: start: 20140305, end: 2014
  3. LAZANDA [Suspect]
     Indication: BACK PAIN
     Dosage: EVERY THREE OR FOUR HOURS
     Route: 045
     Dates: start: 20140305, end: 2014
  4. OXYCODONE [Concomitant]
  5. FENTANYL [Concomitant]
  6. XANAX [Concomitant]

REACTIONS (2)
  - Pain [None]
  - Dyspnoea [None]
